FAERS Safety Report 9239884 (Version 1)
Quarter: 2013Q2

REPORT INFORMATION
  Report Type: Spontaneous
  Country: US (occurrence: US)
  Receive Date: 20130418
  Receipt Date: 20130418
  Transmission Date: 20140414
  Serious: No
  Sender: FDA-Public Use
  Company Number: US-ASTRAZENECA-2013SE22147

PATIENT
  Age: 80 Year
  Sex: Female

DRUGS (2)
  1. PRILOSEC OTC [Suspect]
     Indication: DYSPEPSIA
     Route: 048
  2. ALL OTHER THERAPEUTIC PRODUCTS [Interacting]
     Route: 065

REACTIONS (2)
  - Drug interaction [Unknown]
  - Nausea [Recovered/Resolved]
